FAERS Safety Report 5654932-7 (Version None)
Quarter: 2008Q1

REPORT INFORMATION
  Report Type: 
  Country: None (occurrence: None)
  Receive Date: 20080307
  Receipt Date: 20071001
  Transmission Date: 20080703
  Serious: No
  Sender: FDA-Public Use
  Company Number: A0681832A

PATIENT
  Age: 64 Year
  Sex: Male

DRUGS (2)
  1. REQUIP [Suspect]
     Indication: PARKINSON'S DISEASE
     Route: 048
  2. AMANTADINE HCL [Suspect]

REACTIONS (2)
  - LIVEDO RETICULARIS [None]
  - OEDEMA PERIPHERAL [None]
